FAERS Safety Report 7506526-6 (Version None)
Quarter: 2011Q2

REPORT INFORMATION
  Report Type: 
  Country: None (occurrence: None)
  Receive Date: 20110526
  Receipt Date: 20110518
  Transmission Date: 20111010
  Serious: Yes (Hospitalization, Other)
  Sender: FDA-Public Use
  Company Number: US-MERCK-0509USA04012

PATIENT
  Age: 75 Year
  Sex: Female
  Weight: 52 kg

DRUGS (4)
  1. FOSAMAX PLUS D [Suspect]
     Route: 048
  2. FOSAMAX [Suspect]
     Indication: OSTEOPOROSIS
     Route: 048
     Dates: start: 19970101
  3. FOSAMAX [Suspect]
     Route: 048
     Dates: end: 20050701
  4. FOSAMAX [Suspect]
     Route: 048
     Dates: start: 20060211

REACTIONS (29)
  - BLADDER PROLAPSE [None]
  - RETINAL VEIN OCCLUSION [None]
  - LOOSE TOOTH [None]
  - CHILLS [None]
  - HEAD INJURY [None]
  - ONYCHOMYCOSIS [None]
  - DEAFNESS [None]
  - PERIODONTITIS [None]
  - VENOUS ANGIOMA OF BRAIN [None]
  - OSTEONECROSIS OF JAW [None]
  - ANXIETY [None]
  - NERVOUS SYSTEM DISORDER [None]
  - CEREBRAL SMALL VESSEL ISCHAEMIC DISEASE [None]
  - MASTOID DISORDER [None]
  - CATARACT [None]
  - VAGINAL DISORDER [None]
  - VERTIGO POSITIONAL [None]
  - BLINDNESS UNILATERAL [None]
  - FALL [None]
  - SPINAL COMPRESSION FRACTURE [None]
  - SINUS DISORDER [None]
  - IMPAIRED HEALING [None]
  - TOOTH FRACTURE [None]
  - BLOOD SODIUM DECREASED [None]
  - CAROTID ARTERIOSCLEROSIS [None]
  - BREAST MASS [None]
  - RETCHING [None]
  - OSTEOPENIA [None]
  - BLOOD PRESSURE INCREASED [None]
